FAERS Safety Report 8829472 (Version 1)
Quarter: 2012Q4

REPORT INFORMATION
  Report Type: 
  Country: US (occurrence: US)
  Receive Date: 20121008
  Receipt Date: 20121008
  Transmission Date: 20130627
  Serious: Yes (Other)
  Sender: FDA-Public Use
  Company Number: US-ROCHE-1134979

PATIENT
  Sex: Female

DRUGS (2)
  1. RITUXAN [Suspect]
     Indication: LYMPHOMA
     Route: 065
     Dates: start: 20001128
  2. RITUXAN [Suspect]
     Indication: DIFFUSE LARGE B-CELL LYMPHOMA

REACTIONS (10)
  - White blood cell count decreased [Unknown]
  - Platelet count decreased [Unknown]
  - Hypercalcaemia [Unknown]
  - Constipation [Unknown]
  - Abdominal pain upper [Unknown]
  - Asthenia [Unknown]
  - Tremor [Unknown]
  - Confusional state [Unknown]
  - Hallucination [Unknown]
  - Dehydration [Unknown]
